FAERS Safety Report 24545392 (Version 2)
Quarter: 2024Q4

REPORT INFORMATION
  Report Type: Spontaneous
  Country: JP (occurrence: JP)
  Receive Date: 20241024
  Receipt Date: 20241112
  Transmission Date: 20250115
  Serious: No
  Sender: ROCHE
  Company Number: JP-CHUGAI-2024036622

PATIENT
  Age: 3 Year
  Sex: Male
  Weight: 7.01 kg

DRUGS (2)
  1. ZELBORAF [Suspect]
     Active Substance: VEMURAFENIB
     Indication: Langerhans^ cell histiocytosis
     Dosage: 168 MILLIGRAM, QD
     Route: 048
     Dates: start: 20220820, end: 20230608
  2. ZELBORAF [Suspect]
     Active Substance: VEMURAFENIB
     Route: 048
     Dates: start: 20230609

REACTIONS (2)
  - Lentigo [Unknown]
  - Off label use [Unknown]

NARRATIVE: CASE EVENT DATE: 20241017
